FAERS Safety Report 24324304 (Version 1)
Quarter: 2024Q3

REPORT INFORMATION
  Report Type: Spontaneous
  Country: US (occurrence: None)
  Receive Date: 20240916
  Receipt Date: 20240916
  Transmission Date: 20241016
  Serious: Yes (Hospitalization)
  Sender: Public
  Company Number: None

PATIENT
  Sex: Male

DRUGS (2)
  1. KEYTRUDA [Suspect]
     Active Substance: PEMBROLIZUMAB
     Indication: Lung neoplasm malignant
     Dosage: 200MG  EVERY 21 DAYS INTRAVENOUSLY?
     Route: 042
     Dates: start: 202406
  2. UDENYCA [Suspect]
     Active Substance: PEGFILGRASTIM-CBQV
     Indication: Lung neoplasm malignant
     Dosage: 6MG  EVERY 3 WEEKS UNDER THE SKIN?
     Route: 058
     Dates: start: 202310

REACTIONS (4)
  - Platelet count decreased [None]
  - White blood cell count decreased [None]
  - Red blood cell count decreased [None]
  - Oxygen saturation decreased [None]
